FAERS Safety Report 7982663-7 (Version None)
Quarter: 2011Q4

REPORT INFORMATION
  Report Type: 
  Country: None (occurrence: None)
  Receive Date: 20111215
  Receipt Date: 20111208
  Transmission Date: 20120403
  Serious: Yes (Hospitalization, Other)
  Sender: FDA-Public Use
  Company Number: AU-ALEXION-A201101782

PATIENT
  Sex: Female

DRUGS (6)
  1. FUROSEMIDE [Concomitant]
     Dosage: 250 MG, BID
  2. CALCIUM CARBONATE [Concomitant]
     Dosage: 1, TID
  3. SOLIRIS [Suspect]
     Indication: HAEMOLYTIC URAEMIC SYNDROME
     Dosage: 1200 MG, Q2W
     Route: 042
     Dates: start: 20111104
  4. LERCANIDIPINE [Concomitant]
     Dosage: 10 MG, QD
  5. FOLIC ACID [Concomitant]
     Dosage: 5 MG, QD
  6. VITAMIN D [Concomitant]
     Dosage: 25 UG, QD

REACTIONS (2)
  - CARDIOMYOPATHY [None]
  - PULMONARY EMBOLISM [None]
